FAERS Safety Report 8371010-7 (Version None)
Quarter: 2012Q2

REPORT INFORMATION
  Report Type: 
  Country: None (occurrence: None)
  Receive Date: 20120518
  Receipt Date: 20120508
  Transmission Date: 20120825
  Serious: Yes (Hospitalization)
  Sender: FDA-Public Use
  Company Number: US-JNJFOC-20120510363

PATIENT
  Sex: Female
  Weight: 40.5 kg

DRUGS (8)
  1. ACETAMINOPHEN [Concomitant]
  2. ALL OTHER THERAPEUTIC PRODUCTS [Concomitant]
  3. KENALOG [Concomitant]
  4. THALIDOMIDE [Concomitant]
  5. PREDNISONE [Concomitant]
  6. MESALAMINE [Concomitant]
  7. REMICADE [Suspect]
     Indication: INFLAMMATORY BOWEL DISEASE
     Route: 042
     Dates: start: 20060301
  8. ANTIBIOTICS [Concomitant]

REACTIONS (1)
  - GASTROENTERITIS VIRAL [None]
